FAERS Safety Report 23049095 (Version 1)
Quarter: 2023Q4

REPORT INFORMATION
  Report Type: Spontaneous
  Country: CN (occurrence: CN)
  Receive Date: 20231010
  Receipt Date: 20231010
  Transmission Date: 20240109
  Serious: Yes (Other)
  Sender: FDA-Public Use
  Company Number: None

PATIENT
  Age: 61 Year
  Sex: Female
  Weight: 50 kg

DRUGS (8)
  1. CARBOPLATIN [Suspect]
     Active Substance: CARBOPLATIN
     Indication: Breast cancer
     Dosage: 450 MILLIGRAM, QD
     Route: 042
     Dates: start: 20230622, end: 20230622
  2. TRASTUZUMAB [Suspect]
     Active Substance: TRASTUZUMAB
     Indication: Breast cancer
     Dosage: 300 MILLIGRAM, QD
     Route: 042
     Dates: start: 20230622, end: 20230622
  3. PACLITAXEL [Concomitant]
     Active Substance: PACLITAXEL
     Indication: Breast cancer
     Dosage: 270 MILLIGRAM, QD
     Route: 042
     Dates: start: 20230622, end: 20230622
  4. UBENIMEX [Concomitant]
     Active Substance: UBENIMEX
     Indication: Breast cancer
     Dosage: 10 MILLIGRAM, TID
     Route: 048
     Dates: start: 20230622, end: 20230622
  5. PERTUZUMAB [Concomitant]
     Active Substance: PERTUZUMAB
     Indication: Breast cancer
  6. BICYCLOL [Concomitant]
     Active Substance: BICYCLOL
     Indication: Hepatobiliary disorder prophylaxis
     Dosage: 50 MILLIGRAM, TID
     Route: 048
     Dates: start: 20230622, end: 20230622
  7. DEXAMETHASONE SODIUM PHOSPHATE [Concomitant]
     Active Substance: DEXAMETHASONE SODIUM PHOSPHATE
     Indication: Prophylaxis of nausea and vomiting
     Dosage: 10 MILLIGRAM, QD
     Route: 042
     Dates: start: 20230622, end: 20230622
  8. MAGNESIUM ISOGLYCYRRHIZINATE [Concomitant]
     Active Substance: MAGNESIUM ISOGLYCYRRHIZINATE
     Indication: Hepatobiliary disorder prophylaxis
     Dosage: 200 MILLIGRAM, QD
     Route: 042
     Dates: start: 20230622, end: 20230624

REACTIONS (1)
  - Renal impairment [Recovering/Resolving]

NARRATIVE: CASE EVENT DATE: 20230630
